FAERS Safety Report 9099293 (Version 1)
Quarter: 2013Q1

REPORT INFORMATION
  Report Type: Report from Study
  Country: DE (occurrence: DE)
  Receive Date: 20130214
  Receipt Date: 20130214
  Transmission Date: 20140127
  Serious: Yes (Hospitalization)
  Sender: FDA-Public Use
  Company Number: DE-PFIZER INC-2013053890

PATIENT
  Age: 59 Year
  Sex: Female
  Weight: 105 kg

DRUGS (1)
  1. TORISEL [Suspect]
     Indication: ENDOMETRIAL CANCER
     Dosage: 25 MG, 1X/DAY
     Route: 042
     Dates: start: 20130110

REACTIONS (1)
  - Angioedema [Recovered/Resolved]
